FAERS Safety Report 17495602 (Version 8)
Quarter: 2020Q3

REPORT INFORMATION
  Report Type: Spontaneous
  Country: US (occurrence: US)
  Receive Date: 20200304
  Receipt Date: 20200925
  Transmission Date: 20201102
  Serious: No
  Sender: FDA-Public Use
  Company Number: US-PFIZER INC-2020093807

PATIENT
  Age: 76 Year
  Sex: Male
  Weight: 90 kg

DRUGS (2)
  1. LYRICA [Suspect]
     Active Substance: PREGABALIN
     Indication: PAIN
     Dosage: UNK, 2X/DAY (TAKE 1 BY MOUTH TWICE A DAY)
     Route: 048
  2. LYRICA [Suspect]
     Active Substance: PREGABALIN
     Indication: PARAESTHESIA
     Dosage: 50 MG, 1X/DAY
     Dates: start: 20200301

REACTIONS (3)
  - Peripheral swelling [Unknown]
  - Hearing disability [Unknown]
  - Arthritis [Unknown]

NARRATIVE: CASE EVENT DATE: 2020
